FAERS Safety Report 24411401 (Version 1)
Quarter: 2024Q4

REPORT INFORMATION
  Report Type: Spontaneous
  Country: MY (occurrence: MY)
  Receive Date: 20241008
  Receipt Date: 20241008
  Transmission Date: 20250114
  Serious: Yes (Hospitalization)
  Sender: EISAI
  Company Number: MY-Eisai-EC-2024-176137

PATIENT
  Age: 27 Year
  Sex: Female

DRUGS (1)
  1. LEMBOREXANT [Suspect]
     Active Substance: LEMBOREXANT
     Indication: Insomnia
     Route: 048

REACTIONS (2)
  - Overdose [Unknown]
  - Somnolence [Unknown]
